FAERS Safety Report 8129845-1 (Version None)
Quarter: 2012Q1

REPORT INFORMATION
  Report Type: 
  Country: None (occurrence: None)
  Receive Date: 20120210
  Receipt Date: 20120130
  Transmission Date: 20120608
  Serious: Yes (Life-Threatening)
  Sender: FDA-Public Use
  Company Number: CN-BAUSCH-2012BL000730

PATIENT
  Age: 24 Year
  Sex: Male

DRUGS (6)
  1. SEVOFLURANE [Concomitant]
  2. FLURBIPROFEN SODIUM [Suspect]
     Route: 042
  3. GRANISETRON [Concomitant]
  4. PROPOFOL [Concomitant]
     Route: 042
  5. REMIFENTANIL [Concomitant]
     Route: 042
  6. NICARDIPINE HCL [Concomitant]

REACTIONS (1)
  - STATUS ASTHMATICUS [None]
